FAERS Safety Report 9905406 (Version 1)
Quarter: 2014Q1

REPORT INFORMATION
  Report Type: Report from Study
  Country: MX (occurrence: MX)
  Receive Date: 20140218
  Receipt Date: 20140218
  Transmission Date: 20141002
  Serious: Yes (Hospitalization, Other)
  Sender: FDA-Public Use
  Company Number: MX-BAYER-2014-022087

PATIENT
  Age: 65 Year
  Sex: Female

DRUGS (4)
  1. NEXAVAR [Suspect]
     Dosage: UNK
     Route: 048
     Dates: start: 201306, end: 201401
  2. CAPTOPRIL [Concomitant]
     Dosage: 25 MG, QD
     Route: 048
  3. LOSEC [Concomitant]
     Dosage: UNK
     Route: 048
  4. PARACETAMOL [Concomitant]
     Dosage: UNK
     Route: 048

REACTIONS (8)
  - Blood count abnormal [Unknown]
  - Urticaria [Unknown]
  - Pain in extremity [Unknown]
  - Stomatitis [Unknown]
  - Hypertension [Unknown]
  - Diarrhoea [Unknown]
  - Constipation [Unknown]
  - Colitis [Unknown]
